FAERS Safety Report 7074218-6 (Version None)
Quarter: 2010Q4

REPORT INFORMATION
  Report Type: 
  Country: None (occurrence: None)
  Receive Date: 20101029
  Receipt Date: 20101020
  Transmission Date: 20110411
  Serious: No
  Sender: FDA-Public Use
  Company Number: BR-ROCHE-735789

PATIENT
  Age: 21 Month
  Sex: Female

DRUGS (2)
  1. ROACUTAN [Suspect]
     Indication: ACNE
     Route: 064
     Dates: start: 20020101
  2. ROACUTAN [Suspect]
     Route: 064

REACTIONS (2)
  - LIVE BIRTH [None]
  - NO ADVERSE EVENT [None]
